FAERS Safety Report 8812764 (Version 1)
Quarter: 2012Q4

REPORT INFORMATION
  Report Type: 
  Country: US (occurrence: US)
  Receive Date: 20120927
  Receipt Date: 20120927
  Transmission Date: 20130627
  Serious: No
  Sender: FDA-Public Use
  Company Number: US-ASTRAZENECA-2012SE64620

PATIENT
  Sex: Female

DRUGS (10)
  1. NEXIUM [Suspect]
     Route: 048
  2. PRILOSEC [Suspect]
     Route: 048
  3. MAGNESIUM [Concomitant]
  4. VITAMIN C [Concomitant]
  5. VITAMIN D [Concomitant]
  6. VITAMIN B12 [Concomitant]
  7. OTHER VITAMIN B [Concomitant]
  8. MACROBID [Concomitant]
  9. PROTRONIX [Concomitant]
  10. ZANTAC [Concomitant]

REACTIONS (4)
  - Gastrooesophageal reflux disease [Unknown]
  - Renal disorder [Unknown]
  - Urinary tract infection [Unknown]
  - Drug dose omission [Unknown]
